FAERS Safety Report 4765882-2 (Version None)
Quarter: 2005Q3

REPORT INFORMATION
  Report Type: 
  Country: None (occurrence: None)
  Receive Date: 20050906
  Receipt Date: 20050826
  Transmission Date: 20060218
  Serious: Yes (Hospitalization)
  Sender: FDA-Public Use
  Company Number: 2005-08-1912

PATIENT
  Sex: Female

DRUGS (13)
  1. RINDERON ORAL, NOT OTHERWISE SPECIFIED   LIKE CELESTONE ORAL SOLUTION [Suspect]
     Dosage: 1-2 MG/D ORAL; 2 MG ORAL; 1 MG/D ORAL
     Route: 048
     Dates: start: 20050808, end: 20050814
  2. RINDERON ORAL, NOT OTHERWISE SPECIFIED   LIKE CELESTONE ORAL SOLUTION [Suspect]
     Dosage: 1-2 MG/D ORAL; 2 MG ORAL; 1 MG/D ORAL
     Route: 048
     Dates: start: 20050808, end: 20050819
  3. RINDERON ORAL, NOT OTHERWISE SPECIFIED   LIKE CELESTONE ORAL SOLUTION [Suspect]
     Dosage: 1-2 MG/D ORAL; 2 MG ORAL; 1 MG/D ORAL
     Route: 048
     Dates: start: 20050815, end: 20050819
  4. MEXAZOLAM [Suspect]
     Dosage: 2 MG/D ORAL; 2.2 MG/D ORAL
     Route: 048
     Dates: start: 20050808, end: 20050814
  5. MEXAZOLAM [Suspect]
     Dosage: 2 MG/D ORAL; 2.2 MG/D ORAL
     Route: 048
     Dates: start: 20050808, end: 20050819
  6. MEXAZOLAM [Suspect]
     Dosage: 2 MG/D ORAL; 2.2 MG/D ORAL
     Route: 048
     Dates: start: 20050815, end: 20050819
  7. AMOXAPINE [Suspect]
     Dosage: 80 MG/D ORAL; 120 MG/D ORAL
     Route: 048
     Dates: start: 20050808, end: 20050814
  8. AMOXAPINE [Suspect]
     Dosage: 80 MG/D ORAL; 120 MG/D ORAL
     Route: 048
     Dates: start: 20050808, end: 20050819
  9. AMOXAPINE [Suspect]
     Dosage: 80 MG/D ORAL; 120 MG/D ORAL
     Route: 048
     Dates: start: 20050815, end: 20050819
  10. TIZANIDINE HYDROCHLORIDE [Suspect]
     Dosage: 3 MG/D ORAL
     Route: 048
     Dates: start: 20050808, end: 20050814
  11. BERAPROST [Suspect]
     Dosage: 60 MCG-MG/D ORAL
     Route: 048
     Dates: start: 20050808, end: 20050814
  12. ETHYL ICOSAPENTATE TABLETS [Suspect]
     Dosage: 3 TABS/D ORAL
     Route: 048
     Dates: start: 20050815, end: 20050819
  13. HERBAL MEDICATION [Suspect]
     Dosage: 2G/D ORAL
     Route: 048
     Dates: start: 20050808, end: 20050819

REACTIONS (4)
  - ALANINE AMINOTRANSFERASE INCREASED [None]
  - ASPARTATE AMINOTRANSFERASE INCREASED [None]
  - HEPATIC FUNCTION ABNORMAL [None]
  - RASH [None]
